FAERS Safety Report 18813953 (Version 1)
Quarter: 2021Q1

REPORT INFORMATION
  Report Type: Spontaneous
  Country: IN (occurrence: IN)
  Receive Date: 20210201
  Receipt Date: 20210201
  Transmission Date: 20210419
  Serious: Yes (Life-Threatening, Hospitalization)
  Sender: FDA-Public Use
  Company Number: IN-LUPIN LIMITED-2021-00910

PATIENT
  Age: 40 Year
  Sex: Female

DRUGS (4)
  1. MISOPROSTOL. [Suspect]
     Active Substance: MISOPROSTOL
     Indication: POSTPARTUM HAEMORRHAGE
     Dosage: 800 MILLIGRAM, UNK
     Route: 065
  2. PROSTAGLANDIN F2 ALPHA [Suspect]
     Active Substance: DINOPROST
     Indication: POSTPARTUM HAEMORRHAGE
     Dosage: 250 MICROGRAM
     Route: 030
  3. SALINE [SODIUM CHLORIDE] [Concomitant]
     Active Substance: SODIUM CHLORIDE
     Indication: PRODUCT USED FOR UNKNOWN INDICATION
     Dosage: INFUSION OF OXYTOCIN (20 IU IN 500 ML SODIUM CHLORIDE AT A RATE OF 125 ML/ HR)
     Route: 065
  4. OXYTOCIN. [Suspect]
     Active Substance: OXYTOCIN
     Indication: POSTPARTUM HAEMORRHAGE
     Dosage: INFUSION OF OXYTOCIN (20 IU IN 500 ML SODIUM CHLORIDE AT A RATE OF 125 ML/ HR)
     Route: 065

REACTIONS (1)
  - Drug ineffective [Unknown]
